FAERS Safety Report 9109158 (Version 1)
Quarter: 2013Q1

REPORT INFORMATION
  Report Type: Spontaneous
  Country: CH (occurrence: CH)
  Receive Date: 20130222
  Receipt Date: 20130222
  Transmission Date: 20140127
  Serious: Yes (Hospitalization)
  Sender: FDA-Public Use
  Company Number: CH-GLAXOSMITHKLINE-B0869516A

PATIENT
  Age: 44 Year
  Sex: Female

DRUGS (3)
  1. VENTOLIN [Suspect]
     Indication: ASTHMA
     Route: 055
  2. ALVESCO [Suspect]
     Indication: ASTHMA
     Dosage: 160MCG TWICE PER DAY
     Route: 055
  3. FORADIL [Suspect]
     Indication: ASTHMA
     Dosage: 12MCG TWICE PER DAY
     Route: 055

REACTIONS (9)
  - Hyperlactacidaemia [Recovered/Resolved]
  - General physical health deterioration [Unknown]
  - Dyspnoea [Unknown]
  - Prolonged expiration [Unknown]
  - Wheezing [Unknown]
  - Asthma [Unknown]
  - Blood lactic acid increased [Unknown]
  - Lactic acidosis [Unknown]
  - Cough [Unknown]
